FAERS Safety Report 8803825 (Version 2)
Quarter: 2012Q4

REPORT INFORMATION
  Report Type: 
  Country: US (occurrence: US)
  Receive Date: 20120924
  Receipt Date: 20121010
  Transmission Date: 20130627
  Serious: No
  Sender: FDA-Public Use
  Company Number: US-PFIZER INC-2012231455

PATIENT
  Sex: Male

DRUGS (4)
  1. LIPITOR [Suspect]
     Dosage: UNK
  2. CARDURA [Suspect]
     Dosage: UNK
  3. ACCUPRIL [Suspect]
     Dosage: UNK
  4. VIAGRA [Suspect]
     Dosage: UNK

REACTIONS (2)
  - Sinus disorder [Unknown]
  - Nasopharyngitis [Unknown]
